FAERS Safety Report 8553322-7 (Version None)
Quarter: 2012Q2

REPORT INFORMATION
  Report Type: 
  Country: None (occurrence: None)
  Receive Date: 20120417
  Receipt Date: 20110906
  Transmission Date: 20120825
  Serious: Yes (Hospitalization, Other)
  Sender: FDA-Public Use
  Company Number: 11-534

PATIENT
  Age: 51 Year
  Sex: Female
  Weight: 81 kg

DRUGS (4)
  1. NAPROXEN SODIUM [Suspect]
     Indication: SPINAL FUSION SURGERY
     Dosage: 2 DF;QOD;ORAL
     Route: 048
     Dates: start: 20110401, end: 20110825
  2. XANAX [Concomitant]
  3. METFORMIN HYDROCHLORIDE [Concomitant]
  4. SIMVASTATIN [Concomitant]

REACTIONS (1)
  - GASTROINTESTINAL HAEMORRHAGE [None]
